FAERS Safety Report 9163135 (Version 1)
Quarter: 2013Q1

REPORT INFORMATION
  Report Type: Report from Study
  Country: BE (occurrence: BE)
  Receive Date: 20130314
  Receipt Date: 20130314
  Transmission Date: 20140127
  Serious: Yes (Death, Hospitalization)
  Sender: FDA-Public Use
  Company Number: BE-ROCHE-1188955

PATIENT
  Age: 70 Year
  Sex: Male

DRUGS (2)
  1. MIRCERA [Suspect]
     Indication: PRODUCT USED FOR UNKNOWN INDICATION
     Route: 058
     Dates: start: 20121027
  2. MIRCERA [Suspect]
     Route: 058

REACTIONS (3)
  - Fractured coccyx [Unknown]
  - Orthostatic hypotension [Unknown]
  - Death [Fatal]
